FAERS Safety Report 17250219 (Version 1)
Quarter: 2020Q1

REPORT INFORMATION
  Report Type: Spontaneous
  Country: US (occurrence: US)
  Receive Date: 20200109
  Receipt Date: 20200109
  Transmission Date: 20200409
  Serious: No
  Sender: FDA-Public Use
  Company Number: US-ALLERGAN-1941998US

PATIENT
  Sex: Female

DRUGS (1)
  1. ALOCRIL [Suspect]
     Active Substance: NEDOCROMIL SODIUM
     Indication: PRODUCT USED FOR UNKNOWN INDICATION
     Route: 047

REACTIONS (2)
  - Product storage error [Unknown]
  - Eye swelling [Unknown]

NARRATIVE: CASE EVENT DATE: 20191015
